FAERS Safety Report 24429375 (Version 1)
Quarter: 2024Q4

REPORT INFORMATION
  Report Type: Spontaneous
  Country: US (occurrence: US)
  Receive Date: 20241011
  Receipt Date: 20241011
  Transmission Date: 20250114
  Serious: Yes (Other)
  Sender: MERCK
  Company Number: US-009507513-2410USA003793

PATIENT
  Age: 67 Year
  Sex: Female

DRUGS (5)
  1. KEYTRUDA [Suspect]
     Active Substance: PEMBROLIZUMAB
     Indication: Oesophageal adenocarcinoma
     Dosage: 200 MILLIGRAM, Q3W
  2. OXALIPLATIN [Suspect]
     Active Substance: OXALIPLATIN
     Indication: Oesophageal adenocarcinoma
     Dosage: 85 MILLIGRAM/SQ. METER, EVERY 2 WEEKS
  3. TRASTUZUMAB [Suspect]
     Active Substance: TRASTUZUMAB
     Indication: Oesophageal adenocarcinoma
     Dosage: 8 MILLIGRAM/KILOGRAM LOADING DOSE FOLLOWED BY 6 MG/KG, Q3W
  4. TRASTUZUMAB [Suspect]
     Active Substance: TRASTUZUMAB
     Dosage: 8 MILLIGRAM/KILOGRAM LOADING DOSE FOLLOWED BY 6 MG/KG, Q3W
  5. FLUOROURACIL SODIUM [Suspect]
     Active Substance: FLUOROURACIL SODIUM
     Indication: Oesophageal adenocarcinoma
     Dosage: 2400 MILLIGRAM/SQ. METER, EVERY 2 WEEKS

REACTIONS (2)
  - Vogt-Koyanagi-Harada disease [Recovered/Resolved]
  - Product use issue [Unknown]
